FAERS Safety Report 18595395 (Version 1)
Quarter: 2020Q4

REPORT INFORMATION
  Report Type: Spontaneous
  Country: US (occurrence: US)
  Receive Date: 20201209
  Receipt Date: 20201209
  Transmission Date: 20210114
  Serious: Yes (Disabling)
  Sender: FDA-Public Use
  Company Number: None

PATIENT
  Age: 37 Year
  Sex: Female

DRUGS (1)
  1. LILETTA [Suspect]
     Active Substance: LEVONORGESTREL
     Dates: start: 20181113, end: 20201207

REACTIONS (3)
  - Cognitive disorder [None]
  - Amnesia [None]
  - Menstruation irregular [None]

NARRATIVE: CASE EVENT DATE: 20181113
